FAERS Safety Report 12567714 (Version 1)
Quarter: 2016Q3

REPORT INFORMATION
  Report Type: Spontaneous
  Country: US (occurrence: US)
  Receive Date: 20160718
  Receipt Date: 20160718
  Transmission Date: 20161109
  Serious: No
  Sender: FDA-Public Use
  Company Number: US-ASTELLAS-2016US005585

PATIENT
  Age: 76 Year
  Sex: Female

DRUGS (2)
  1. MYRBETRIQ [Suspect]
     Active Substance: MIRABEGRON
     Indication: INCONTINENCE
     Dosage: 25 MG, (IN THE MORNING AND EVENING) TWICE DAILY
     Route: 065
     Dates: start: 2015
  2. MYRBETRIQ [Suspect]
     Active Substance: MIRABEGRON
     Indication: HYPERTONIC BLADDER
     Route: 065
     Dates: start: 201602, end: 201602

REACTIONS (4)
  - Inappropriate schedule of drug administration [Recovering/Resolving]
  - Blood pressure increased [Recovering/Resolving]
  - Drug ineffective [Recovering/Resolving]
  - Intentional product misuse [Unknown]
